FAERS Safety Report 22053339 (Version 2)
Quarter: 2023Q2

REPORT INFORMATION
  Report Type: Spontaneous
  Country: CA (occurrence: CA)
  Receive Date: 20230302
  Receipt Date: 20230525
  Transmission Date: 20230722
  Serious: Yes (Life-Threatening, Hospitalization)
  Sender: FDA-Public Use
  Company Number: CA-002147023-NVSC2023CA046586

PATIENT
  Age: 14 Year
  Sex: Male

DRUGS (15)
  1. METHOTREXATE [Suspect]
     Active Substance: METHOTREXATE
     Indication: Colitis ulcerative
     Dosage: 12.5 MG, QD (1 EVERY 1 DAYS)
     Route: 048
  2. METHOTREXATE [Suspect]
     Active Substance: METHOTREXATE
     Dosage: UNK
     Route: 065
  3. HUMIRA [Suspect]
     Active Substance: ADALIMUMAB
     Indication: Colitis ulcerative
     Dosage: UNK (FORMULATION SOLUTION SUBCUTANEOUS)
     Route: 058
  4. PREDNISONE [Suspect]
     Active Substance: PREDNISONE
     Indication: Colitis ulcerative
     Dosage: UNK
     Route: 065
  5. MESALAMINE [Suspect]
     Active Substance: MESALAMINE
     Indication: Colitis ulcerative
     Dosage: UNK, (TABLET DELAYED AND EXTENDED RELEASE) (328.0 DAYS)
     Route: 065
  6. MESALAMINE [Suspect]
     Active Substance: MESALAMINE
     Dosage: UNK (TABLET) (328 DAYS)
     Route: 065
  7. REMICADE [Suspect]
     Active Substance: INFLIXIMAB
     Indication: Colitis ulcerative
     Dosage: UNK (FORMULATION POWDER FOR SOLUTION INTRAVENOUS)
     Route: 042
  8. FOLIC ACID [Concomitant]
     Active Substance: FOLIC ACID
     Indication: Product used for unknown indication
     Dosage: 5 MG, QW
     Route: 048
  9. INFLIXIMAB [Concomitant]
     Active Substance: INFLIXIMAB
     Indication: Product used for unknown indication
     Dosage: UNK, Q3W (1 EVERY 3 WEEKS)
     Route: 065
  10. ONDANSETRON HYDROCHLORIDE [Concomitant]
     Active Substance: ONDANSETRON HYDROCHLORIDE
     Indication: Product used for unknown indication
     Dosage: 8 MG, Q8H  (1 EVERY 8 HOURS)
     Route: 048
  11. ONDANSETRON HYDROCHLORIDE [Concomitant]
     Active Substance: ONDANSETRON HYDROCHLORIDE
     Dosage: UNK
     Route: 065
  12. FERROUS FUMARATE [Concomitant]
     Active Substance: FERROUS FUMARATE
     Indication: Product used for unknown indication
     Dosage: 1 DOSAGE FORM, QD (1 EVERY 1 DAYS)
     Route: 048
  13. VANCOMYCIN [Concomitant]
     Active Substance: VANCOMYCIN
     Indication: Product used for unknown indication
     Dosage: 125 MG, Q6H (1 EVERY 6 HOURS)
     Route: 065
  14. VANCOMYCIN [Concomitant]
     Active Substance: VANCOMYCIN
     Dosage: UNK
     Route: 065
  15. XELJANZ [Concomitant]
     Active Substance: TOFACITINIB CITRATE
     Indication: Product used for unknown indication
     Dosage: 40 MG, BID (2 EVERY 1 DAYS)
     Route: 048

REACTIONS (8)
  - Back pain [Unknown]
  - Blood pressure increased [Unknown]
  - Clostridium test positive [Unknown]
  - Abdominal pain [Unknown]
  - Fatigue [Unknown]
  - Pancreatitis [Unknown]
  - Off label use [Unknown]
  - Drug ineffective [Unknown]
